FAERS Safety Report 26204769 (Version 1)
Quarter: 2025Q4

REPORT INFORMATION
  Report Type: Spontaneous
  Country: CH (occurrence: CH)
  Receive Date: 20251227
  Receipt Date: 20251227
  Transmission Date: 20260118
  Serious: Yes (Other)
  Sender: CELLTRION
  Company Number: None

PATIENT

DRUGS (7)
  1. INFLECTRA [Suspect]
     Active Substance: INFLIXIMAB-DYYB
     Indication: Eosinophilic granulomatosis with polyangiitis
     Dosage: 4X INJ. IN 07OCT2024, 21OCT2024, 18NOV2024, 13JAN2025
     Dates: start: 20241007, end: 20250113
  2. DUPILUMAB [Suspect]
     Active Substance: DUPILUMAB
     Indication: Eosinophilic granulomatosis with polyangiitis
     Dosage: 300 MG, EVERY 2 WEEKS (1 SEPARATED DOSES)
     Dates: start: 20240214, end: 20241102
  3. DUPILUMAB [Suspect]
     Active Substance: DUPILUMAB
     Dosage: 300 MG, EVERY 2 WEEKS (1 SEPARATED DOSES)
     Dates: start: 20250414, end: 20250516
  4. DUPILUMAB [Suspect]
     Active Substance: DUPILUMAB
     Dosage: 300 MG, EVERY 2 WEEKS
     Dates: start: 20250806, end: 202509
  5. RINVOQ [Concomitant]
     Active Substance: UPADACITINIB
     Dosage: UNK
     Dates: start: 202205, end: 202302
  6. FLUTICASONE [Concomitant]
     Active Substance: FLUTICASONE
     Dosage: UNK
  7. CALCIUM CARBONATE\CHOLECALCIFEROL [Concomitant]
     Active Substance: CALCIUM CARBONATE\CHOLECALCIFEROL

REACTIONS (2)
  - Hepatic enzyme increased [Unknown]
  - Liver injury [Unknown]

NARRATIVE: CASE EVENT DATE: 20240301
